FAERS Safety Report 5230447-5 (Version None)
Quarter: 2007Q1

REPORT INFORMATION
  Report Type: 
  Country: None (occurrence: None)
  Receive Date: 20070206
  Receipt Date: 20070124
  Transmission Date: 20070707
  Serious: Yes (Death, Hospitalization)
  Sender: FDA-Public Use
  Company Number: SK-ELI_LILLY_AND_COMPANY-SK200701005162

PATIENT
  Age: 77 Year
  Sex: Female

DRUGS (8)
  1. FORTEO [Suspect]
     Indication: OSTEOPOROSIS
     Dosage: 20 UG, DAILY (1/D)
     Route: 058
     Dates: start: 20061001, end: 20061201
  2. ANOPYRIN [Concomitant]
  3. ANAVENOL [Concomitant]
  4. NITRO MACK [Concomitant]
  5. ASCORUTIN [Concomitant]
  6. CONCOR [Concomitant]
  7. EUTHYROX [Concomitant]
  8. DIACORDIN [Concomitant]

REACTIONS (2)
  - CARDIAC FAILURE [None]
  - CEREBROVASCULAR ACCIDENT [None]
